FAERS Safety Report 17027394 (Version 2)
Quarter: 2020Q1

REPORT INFORMATION
  Report Type: Spontaneous
  Country: TR (occurrence: TR)
  Receive Date: 20191113
  Receipt Date: 20200106
  Transmission Date: 20200409
  Serious: Yes (Death)
  Sender: FDA-Public Use
  Company Number: TR-BAYER-2019-204210

PATIENT
  Sex: Female

DRUGS (1)
  1. ADEMPAS [Suspect]
     Active Substance: RIOCIGUAT
     Dosage: UNK

REACTIONS (1)
  - Death [Fatal]
